FAERS Safety Report 21322301 (Version 8)
Quarter: 2023Q1

REPORT INFORMATION
  Report Type: Report from Study
  Country: BE (occurrence: BE)
  Receive Date: 20220912
  Receipt Date: 20230323
  Transmission Date: 20230417
  Serious: Yes (Hospitalization, Disabling, Other)
  Sender: FDA-Public Use
  Company Number: BE-BIOGEN-2022BI01153142

PATIENT
  Age: 51 Year
  Sex: Male

DRUGS (17)
  1. TYSABRI [Suspect]
     Active Substance: NATALIZUMAB
     Indication: Relapsing-remitting multiple sclerosis
     Route: 050
     Dates: start: 20090331
  2. TYSABRI [Suspect]
     Active Substance: NATALIZUMAB
     Route: 050
     Dates: start: 20090331, end: 20210830
  3. TYSABRI [Suspect]
     Active Substance: NATALIZUMAB
     Indication: Relapsing-remitting multiple sclerosis
     Dosage: 2X150 MG
     Route: 050
  4. TYSABRI [Suspect]
     Active Substance: NATALIZUMAB
     Route: 050
     Dates: start: 20210927
  5. DALFAMPRIDINE [Suspect]
     Active Substance: DALFAMPRIDINE
     Indication: Gait disturbance
     Route: 050
     Dates: start: 20180411
  6. IBUPROFEN ARGININE [Concomitant]
     Active Substance: IBUPROFEN ARGININE
     Indication: Product used for unknown indication
     Route: 050
  7. Nasonex neusspray [Concomitant]
     Indication: Product used for unknown indication
     Route: 050
  8. Inuvair nexthaler [Concomitant]
     Indication: Product used for unknown indication
     Route: 050
  9. WELLBUTRIN [Concomitant]
     Active Substance: BUPROPION HYDROCHLORIDE
     Indication: Product used for unknown indication
     Route: 050
  10. lipantylnano [Concomitant]
     Indication: Product used for unknown indication
     Route: 050
  11. TRAMADOL HYDROCHLORIDE [Concomitant]
     Active Substance: TRAMADOL HYDROCHLORIDE
     Indication: Pain
     Route: 050
  12. LIORESAL [Concomitant]
     Active Substance: BACLOFEN
     Indication: Muscle spasticity
     Route: 050
     Dates: start: 20170401
  13. RIVOTRIL [Concomitant]
     Active Substance: CLONAZEPAM
     Indication: Muscle spasticity
     Route: 050
     Dates: start: 20071025
  14. LYRICA [Concomitant]
     Active Substance: PREGABALIN
     Indication: Neuralgia
     Dosage: 150 + 300 MG A DAY
     Route: 050
     Dates: start: 20170802
  15. SILDENAFIL [Concomitant]
     Active Substance: SILDENAFIL
     Indication: Erectile dysfunction
     Route: 050
     Dates: start: 20140923
  16. lipanthyl nano [Concomitant]
     Indication: Dyslipidaemia
     Route: 050
     Dates: start: 20180926
  17. CHOLECALCIFEROL [Concomitant]
     Active Substance: CHOLECALCIFEROL
     Indication: Multiple sclerosis
     Dosage: 25000 IE A MONTH
     Route: 050
     Dates: start: 20170411

REACTIONS (2)
  - Intervertebral disc degeneration [Recovered/Resolved]
  - Incomplete spinal fusion [Not Recovered/Not Resolved]

NARRATIVE: CASE EVENT DATE: 20220620
